FAERS Safety Report 24020260 (Version 1)
Quarter: 2024Q2

REPORT INFORMATION
  Report Type: Report from Study
  Country: US (occurrence: US)
  Receive Date: 20240627
  Receipt Date: 20240627
  Transmission Date: 20240715
  Serious: Yes (Other)
  Sender: FDA-Public Use
  Company Number: US-TEVA-VS-3212004

PATIENT
  Age: 70 Year
  Sex: Female

DRUGS (3)
  1. TRIAMCINOLONE [Suspect]
     Active Substance: TRIAMCINOLONE
     Indication: Arthralgia
     Dosage: TRIAMCINOLONE ACETONIDE. INTRA-ARTICULAR INJECTION OF 6CC SOLUTION COMPRISED OF 1CC OF TRIAMCINOL...
     Route: 014
  2. ROPIVACAINE HYDROCHLORIDE [Suspect]
     Active Substance: ROPIVACAINE HYDROCHLORIDE
     Indication: Arthralgia
     Dosage: INTRA-ARTICULAR INJECTION OF 6CC SOLUTION COMPRISED OF 1CC OF TRIAMCINOLONE 40MG/CC AND 5CC OF RO...
     Route: 014
  3. IOPAMIDOL [Concomitant]
     Active Substance: IOPAMIDOL
     Indication: Scan with contrast
     Dosage: IOPAMIDOL 300 DOSE: 3CC
     Route: 014

REACTIONS (1)
  - Rapidly progressive osteoarthritis [Unknown]
